FAERS Safety Report 6099512-7 (Version None)
Quarter: 2009Q1

REPORT INFORMATION
  Report Type: 
  Country: None (occurrence: None)
  Receive Date: 20090226
  Receipt Date: 20090219
  Transmission Date: 20090719
  Serious: Yes (Hospitalization)
  Sender: FDA-Public Use
  Company Number: 2009000406

PATIENT
  Age: 49 Year
  Sex: Female

DRUGS (5)
  1. ERLOTINIB (ERLOTINIB) (TABLET) (ERLOTINIB) [Suspect]
     Indication: NON-SMALL CELL LUNG CANCER
     Dosage: 150 MG, QD, ORAL
     Route: 048
     Dates: start: 20080922, end: 20090122
  2. BEVACIZUMAB [Suspect]
     Indication: NON-SMALL CELL LUNG CANCER
     Dosage: 870 MG, Q3W, INTRAVENOUS
     Route: 042
     Dates: start: 20080922, end: 20090206
  3. AMLODIPINE BESYLATE [Concomitant]
  4. BISOPROLOL FUMARATE [Concomitant]
  5. ENTECAVIR [Concomitant]

REACTIONS (4)
  - BLOOD ALBUMIN DECREASED [None]
  - LEUKOCYTOCLASTIC VASCULITIS [None]
  - SKIN ULCER [None]
  - WOUND COMPLICATION [None]
